FAERS Safety Report 8226115-8 (Version None)
Quarter: 2012Q1

REPORT INFORMATION
  Report Type: 
  Country: None (occurrence: None)
  Receive Date: 20120307
  Receipt Date: 20090616
  Transmission Date: 20120608
  Serious: No
  Sender: FDA-Public Use
  Company Number: PHEH2009US06646

PATIENT
  Age: 68 Year
  Sex: Male

DRUGS (1)
  1. AFINITOR [Suspect]
     Dosage: 10 MG, QD,ORAL
     Route: 048
     Dates: start: 20090415, end: 20090501

REACTIONS (5)
  - CHILLS [None]
  - FATIGUE [None]
  - MUSCULAR WEAKNESS [None]
  - ASTHENIA [None]
  - SOMNOLENCE [None]
